FAERS Safety Report 9178841 (Version 1)
Quarter: 2013Q1

REPORT INFORMATION
  Report Type: Not Available
  Country: SE (occurrence: SE)
  Receive Date: 20130321
  Receipt Date: 20130321
  Transmission Date: 20140127
  Serious: Yes (Other)
  Sender: FDA-Public Use
  Company Number: SE-PURDUE-GBR-2013-0013448

PATIENT
  Sex: Male

DRUGS (19)
  1. NORSPAN [Suspect]
     Indication: PAIN
     Dosage: UNK
     Route: 062
     Dates: start: 20121217, end: 20130107
  2. CETIRIZIN [Concomitant]
     Dosage: 10 MG, UNK
  3. LIPITOR [Concomitant]
     Dosage: 80 MG, UNK
  4. METFORMIN [Concomitant]
  5. ENALAPRIL [Concomitant]
  6. TREO [Concomitant]
     Dosage: 500 MG, UNK
  7. THERALEN [Concomitant]
     Dosage: 40 UNK, UNK
     Route: 048
  8. COCILLANA-ETYFIN                   /00223001/ [Concomitant]
  9. STESOLID [Concomitant]
     Dosage: 10 MG, UNK
  10. NOVALUZID [Concomitant]
  11. CITODON                            /00116401/ [Concomitant]
     Dosage: 500/30
  12. TROMBYL [Concomitant]
     Dosage: 75 MG, UNK
  13. KLOMIPRAMIN [Concomitant]
     Dosage: 10 MG, UNK
  14. LIVOSTIN [Concomitant]
  15. AMLODIPIN                          /00972401/ [Concomitant]
     Dosage: 5 MG, UNK
  16. ATENOLOL [Concomitant]
  17. BUVENTOL [Concomitant]
     Dosage: 200 MCG, UNK
  18. VIAGRA [Concomitant]
     Dosage: 100 MG, UNK
  19. NOVOMIX [Concomitant]
     Dosage: 100 U/ML, UNK

REACTIONS (10)
  - Ear pain [Unknown]
  - Throat irritation [Unknown]
  - Malaise [Unknown]
  - Eye oedema [Unknown]
  - Pruritus [Unknown]
  - Generalised oedema [Unknown]
  - Pruritus generalised [Unknown]
  - Pyrexia [Unknown]
  - Drug ineffective [Unknown]
  - Cough [Unknown]
